FAERS Safety Report 7753683-2 (Version None)
Quarter: 2011Q3

REPORT INFORMATION
  Report Type: 
  Country: None (occurrence: None)
  Receive Date: 20110915
  Receipt Date: 20110915
  Transmission Date: 20111222
  Serious: Yes (Other)
  Sender: FDA-Public Use
  Company Number: None

PATIENT
  Age: 47 Year
  Sex: Female
  Weight: 83.914 kg

DRUGS (2)
  1. VIIBRYD [Suspect]
     Indication: DEPRESSION
     Dosage: 40MG
     Route: 048
  2. VIIBRYD [Suspect]
     Indication: PAIN
     Dosage: 40MG
     Route: 048

REACTIONS (16)
  - PARAESTHESIA [None]
  - TINNITUS [None]
  - AGGRESSION [None]
  - NERVOUSNESS [None]
  - DRUG ADMINISTRATION ERROR [None]
  - TREATMENT NONCOMPLIANCE [None]
  - HEADACHE [None]
  - CRYING [None]
  - ANGER [None]
  - SUICIDAL IDEATION [None]
  - PSYCHOMOTOR HYPERACTIVITY [None]
  - ABNORMAL DREAMS [None]
  - DEPRESSED MOOD [None]
  - FEELING ABNORMAL [None]
  - EMOTIONAL DISORDER [None]
  - MUSCLE SPASMS [None]
